FAERS Safety Report 23727941 (Version 1)
Quarter: 2024Q2

REPORT INFORMATION
  Report Type: Spontaneous
  Country: US (occurrence: None)
  Receive Date: 20240409
  Receipt Date: 20240409
  Transmission Date: 20240715
  Serious: No
  Sender: FDA-Public Use
  Company Number: None

PATIENT
  Age: 45 Year
  Sex: Male
  Weight: 72.45 kg

DRUGS (2)
  1. ROCURONIUM [Suspect]
     Active Substance: ROCURONIUM BROMIDE
     Indication: Anaesthesia
     Dosage: OTHER QUANTITY : 1 UNKNOWN;?OTHER FREQUENCY : ONE TIME;?OTHER ROUTE : UNKNOWN;?
     Route: 050
     Dates: start: 20240205, end: 20240205
  2. ventilation [Concomitant]

REACTIONS (1)
  - Respiratory arrest [None]

NARRATIVE: CASE EVENT DATE: 20240205
